FAERS Safety Report 5894072-5 (Version None)
Quarter: 2008Q3

REPORT INFORMATION
  Report Type: 
  Country: None (occurrence: None)
  Receive Date: 20080922
  Receipt Date: 20080911
  Transmission Date: 20090109
  Serious: Yes (Hospitalization)
  Sender: FDA-Public Use
  Company Number: WAES 0809USA01901

PATIENT
  Age: 65 Year
  Sex: Male
  Weight: 75.7507 kg

DRUGS (5)
  1. CAP VORINOSTAT 400 MG [Suspect]
     Indication: ACUTE MYELOID LEUKAEMIA
     Dosage: 400 MG/DAILY/PO
     Route: 048
     Dates: start: 20080719, end: 20080801
  2. CAP VORINOSTAT 400 MG [Suspect]
     Indication: ACUTE MYELOID LEUKAEMIA
     Dosage: 400 MG/DAILY/PO
     Route: 048
     Dates: start: 20080816, end: 20080829
  3. INFUSION (FORM) DECITABINE 39 MG INFUSION (FORM) 40 MG [Suspect]
     Indication: ACUTE MYELOID LEUKAEMIA
     Dosage: 39 MG/DAILY/IV; 40 MG/DAILY/IV
     Route: 042
     Dates: start: 20080714, end: 20080718
  4. INFUSION (FORM) DECITABINE 39 MG INFUSION (FORM) 40 MG [Suspect]
     Indication: ACUTE MYELOID LEUKAEMIA
     Dosage: 39 MG/DAILY/IV; 40 MG/DAILY/IV
     Route: 042
     Dates: start: 20080811, end: 20080815
  5. INFUSION (FORM) DECITABINE 39 MG INFUSION (FORM) 40 MG [Suspect]
     Indication: ACUTE MYELOID LEUKAEMIA
     Dosage: 39 MG/DAILY/IV; 40 MG/DAILY/IV
     Route: 042
     Dates: start: 20080908, end: 20080910

REACTIONS (2)
  - ANAEMIA [None]
  - ASTHENIA [None]
